FAERS Safety Report 12282212 (Version 3)
Quarter: 2016Q2

REPORT INFORMATION
  Report Type: Spontaneous
  Country: IT (occurrence: IT)
  Receive Date: 20160419
  Receipt Date: 20160422
  Transmission Date: 20160815
  Serious: Yes (Death, Hospitalization, Other)
  Sender: FDA-Public Use
  Company Number: IT-TEVA-652995ACC

PATIENT
  Age: 79 Year
  Sex: Male

DRUGS (10)
  1. BACTRIM [Concomitant]
     Active Substance: SULFAMETHOXAZOLE\TRIMETHOPRIM
     Indication: PRODUCT USED FOR UNKNOWN INDICATION
     Dosage: 2 DOSAGE FORMS DAILY; 1 DF, TWICE DAILY (TUESDAY AND FRIDAY)
     Route: 048
     Dates: start: 20160201
  2. LEVACT [Suspect]
     Active Substance: BENDAMUSTINE HYDROCHLORIDE
     Indication: B-CELL LYMPHOMA
     Dosage: TOTAL AMOUNT OF 120 MG DAY1 AND DAY 2 (FIRST CYCLE) AND 110 MG DAY1 AND 2, SECOND CYCLE
     Route: 042
     Dates: start: 20160201, end: 20160302
  3. ZYLORIC [Concomitant]
     Active Substance: ALLOPURINOL
     Indication: PRODUCT USED FOR UNKNOWN INDICATION
     Dosage: 300 MILLIGRAM DAILY; 300MG ONCE DAILY (APPROX 15 DAYS DURING HOSPITAL STAY IN FEBRUARY, BETWEEN)
     Route: 048
  4. REMERON [Concomitant]
     Active Substance: MIRTAZAPINE
     Indication: PRODUCT USED FOR UNKNOWN INDICATION
     Dosage: 15 MILLIGRAM DAILY;
     Route: 065
  5. ARIXTRA [Concomitant]
     Active Substance: FONDAPARINUX SODIUM
     Indication: PRODUCT USED FOR UNKNOWN INDICATION
     Dosage: 1 DOSAGE FORMS DAILY; 1 DF (1.5, 1 AMPOULE), ONCE DAILY
     Route: 058
  6. DAPAROX                            /00830802/ [Concomitant]
     Active Substance: PAROXETINE HYDROCHLORIDE
     Indication: PRODUCT USED FOR UNKNOWN INDICATION
     Dosage: 20 MILLIGRAM DAILY;
     Route: 065
  7. ZEFFIX [Concomitant]
     Active Substance: LAMIVUDINE
     Indication: PRODUCT USED FOR UNKNOWN INDICATION
     Dosage: 100 MILLIGRAM DAILY;
     Route: 048
     Dates: start: 20160201
  8. MABTHERA [Suspect]
     Active Substance: RITUXIMAB
     Indication: B-CELL LYMPHOMA
     Dosage: TOTAL AMOUNT OF 650 MG DAY1 (FIRST CYCLE) AND FOR A TOTAL AMOUNT OF 600 MG DAY1 (SECOND CYCLE)
     Route: 058
     Dates: start: 20160203, end: 20160301
  9. DELTACORTENE [Concomitant]
     Active Substance: PREDNISONE
     Indication: PRODUCT USED FOR UNKNOWN INDICATION
     Dosage: 25 MILLIGRAM DAILY; 25 MG, ONCE DAILY (1 TBL AND 1/2 TBL)
     Route: 065
  10. CALCIODIE [Concomitant]
     Indication: PRODUCT USED FOR UNKNOWN INDICATION
     Dosage: 1000 MILLIGRAM DAILY;
     Route: 065

REACTIONS (8)
  - Skin exfoliation [Fatal]
  - Erythema multiforme [Fatal]
  - Dermatitis exfoliative [Fatal]
  - Multiple organ dysfunction syndrome [Fatal]
  - Escherichia sepsis [Unknown]
  - Streptococcal sepsis [Unknown]
  - Rash generalised [Fatal]
  - General physical health deterioration [Unknown]

NARRATIVE: CASE EVENT DATE: 20160303
